FAERS Safety Report 5743627-7 (Version None)
Quarter: 2008Q2

REPORT INFORMATION
  Report Type: 
  Country: None (occurrence: None)
  Receive Date: 20080519
  Receipt Date: 20080519
  Transmission Date: 20081010
  Serious: Yes (Hospitalization)
  Sender: FDA-Public Use
  Company Number: None

PATIENT
  Age: 58 Year
  Sex: Male
  Weight: 63.96 kg

DRUGS (1)
  1. FLUCONAZOLE [Suspect]
     Indication: FUNGAL INFECTION
     Dosage: 200 MG EVERY DAY IV
     Route: 042
     Dates: start: 20080405, end: 20080416

REACTIONS (4)
  - FUNGAEMIA [None]
  - NO THERAPEUTIC RESPONSE [None]
  - ORAL CANDIDIASIS [None]
  - POST PROCEDURAL INFECTION [None]
